FAERS Safety Report 22392910 (Version 2)
Quarter: 2023Q2

REPORT INFORMATION
  Report Type: Report from Study
  Country: CA (occurrence: CA)
  Receive Date: 20230601
  Receipt Date: 20230630
  Transmission Date: 20230722
  Serious: Yes (Hospitalization, Other)
  Sender: FDA-Public Use
  Company Number: CA-002147023-NVSC2020CA325511

PATIENT
  Age: 46 Year
  Sex: Female

DRUGS (3)
  1. MAYZENT [Suspect]
     Active Substance: SIPONIMOD
     Indication: Secondary progressive multiple sclerosis
     Dosage: 0.2 MG
     Route: 048
     Dates: start: 20201128, end: 20220914
  2. MAYZENT [Suspect]
     Active Substance: SIPONIMOD
     Indication: Multiple sclerosis
     Dosage: 2 MG, QOD (EVERY OTHER DAY)
     Route: 065
     Dates: start: 20230510
  3. MAYZENT [Suspect]
     Active Substance: SIPONIMOD
     Dosage: 2 MG, Q48H (EVERY 2 DAYS)
     Route: 065
     Dates: start: 20230527

REACTIONS (8)
  - Breast cancer [Recovered/Resolved]
  - Malignant neoplasm progression [Unknown]
  - Cerebrovascular accident [Unknown]
  - Palpitations [Recovered/Resolved]
  - Nausea [Unknown]
  - White blood cell count decreased [Unknown]
  - Lymphopenia [Unknown]
  - Incorrect dose administered [Unknown]

NARRATIVE: CASE EVENT DATE: 20201128
